FAERS Safety Report 13274482 (Version 1)
Quarter: 2017Q1

REPORT INFORMATION
  Report Type: Spontaneous
  Country: US (occurrence: US)
  Receive Date: 20170227
  Receipt Date: 20170227
  Transmission Date: 20170428
  Serious: No
  Sender: FDA-Public Use
  Company Number: US-009507513-1702USA003674

PATIENT
  Age: 22 Year
  Sex: Female
  Weight: 70.3 kg

DRUGS (3)
  1. NUVARING [Suspect]
     Active Substance: ETHINYL ESTRADIOL\ETONOGESTREL
     Indication: MENSTRUAL CYCLE MANAGEMENT
  2. ADVIL [Concomitant]
     Active Substance: IBUPROFEN
  3. NUVARING [Suspect]
     Active Substance: ETHINYL ESTRADIOL\ETONOGESTREL
     Indication: CONTRACEPTION
     Dosage: 3 WEEKS INSIDE THE VAGINA THEN 1 WEEK BREAK, QM
     Route: 067

REACTIONS (6)
  - Menstruation irregular [Unknown]
  - Polymenorrhoea [Recovered/Resolved]
  - Drug dose omission [Unknown]
  - Product use issue [Unknown]
  - Migraine [Unknown]
  - Withdrawal bleed [Recovered/Resolved]
